FAERS Safety Report 6581418-8 (Version None)
Quarter: 2010Q1

REPORT INFORMATION
  Report Type: 
  Country: None (occurrence: None)
  Receive Date: 20100215
  Receipt Date: 20100210
  Transmission Date: 20100710
  Serious: Yes (Hospitalization)
  Sender: FDA-Public Use
  Company Number: A0810150A

PATIENT
  Sex: Female

DRUGS (7)
  1. FLOVENT [Suspect]
     Indication: ASTHMA
     Dosage: 2PUFF TWICE PER DAY
     Route: 055
     Dates: start: 20070101
  2. FORADIL [Concomitant]
  3. ALBUTEROL [Concomitant]
  4. NEXIUM [Concomitant]
  5. EFFEXOR [Concomitant]
  6. SYNTHROID [Concomitant]
  7. LORAZEPAM [Concomitant]

REACTIONS (6)
  - ASTHMA [None]
  - DRUG INEFFECTIVE [None]
  - DYSPNOEA [None]
  - MEDICATION ERROR [None]
  - PRODUCT QUALITY ISSUE [None]
  - RESPIRATORY DISORDER [None]
